FAERS Safety Report 17849399 (Version 1)
Quarter: 2020Q2

REPORT INFORMATION
  Report Type: Spontaneous
  Country: US (occurrence: US)
  Receive Date: 20200601
  Receipt Date: 20200601
  Transmission Date: 20200714
  Serious: Yes (Other)
  Sender: FDA-Public Use
  Company Number: None

PATIENT
  Age: 52 Year
  Sex: Male
  Weight: 73.6 kg

DRUGS (13)
  1. REMDESIVIR. [Suspect]
     Active Substance: REMDESIVIR
     Route: 042
     Dates: start: 20200525, end: 20200526
  2. VANCOMYCIN [Concomitant]
     Active Substance: VANCOMYCIN
     Dates: start: 20200525
  3. NOREPINEPHRINE DRIP [Concomitant]
     Dates: start: 20200523
  4. FENTANYL DRIP [Concomitant]
     Dates: start: 20200523
  5. PROTONIX [Concomitant]
     Active Substance: PANTOPRAZOLE SODIUM
     Dates: start: 20200524
  6. RUCURONIUM DRIP [Concomitant]
     Dates: start: 20200523
  7. HUMALOG SLICING SCALE [Concomitant]
     Dates: start: 20200525
  8. LANTUS [Concomitant]
     Active Substance: INSULIN GLARGINE
     Dates: start: 20200523
  9. ZINC SULFATE. [Concomitant]
     Active Substance: ZINC SULFATE
     Dates: start: 20200524
  10. PROPOFOL DRIP [Concomitant]
     Active Substance: PROPOFOL
     Dates: start: 20200523
  11. CEFEPIME [Concomitant]
     Active Substance: CEFEPIME HYDROCHLORIDE
     Dates: start: 20200525, end: 20200529
  12. HYDROCORTISONE. [Concomitant]
     Active Substance: HYDROCORTISONE
     Dates: start: 20200523, end: 20200527
  13. HEPARIN [Concomitant]
     Active Substance: HEPARIN SODIUM
     Dates: start: 20200523

REACTIONS (5)
  - Alanine aminotransferase increased [None]
  - Creatinine renal clearance decreased [None]
  - Aspartate aminotransferase increased [None]
  - Blood creatinine increased [None]
  - Therapy interrupted [None]

NARRATIVE: CASE EVENT DATE: 20200526
